FAERS Safety Report 5871021-7 (Version None)
Quarter: 2008Q3

REPORT INFORMATION
  Report Type: 
  Country: None (occurrence: None)
  Receive Date: 20080904
  Receipt Date: 20080827
  Transmission Date: 20090109
  Serious: Yes (Hospitalization)
  Sender: FDA-Public Use
  Company Number: CA-ASTRAZENECA-2008UW17390

PATIENT
  Age: 49 Year
  Sex: Female

DRUGS (17)
  1. SEROQUEL XR [Suspect]
     Indication: SCHIZOPHRENIA
     Dosage: 300 MG
     Route: 048
     Dates: start: 20080628, end: 20080628
  2. SEROQUEL XR [Suspect]
     Dosage: 600 MG
     Route: 048
     Dates: start: 20080629, end: 20080801
  3. STUDY PROCEDURE [Suspect]
     Indication: SCHIZOPHRENIA
  4. LOXAPINE [Concomitant]
     Indication: SCHIZOPHRENIA, PARANOID TYPE
     Dosage: 200 MG
     Route: 048
     Dates: end: 20080621
  5. SEROQUEL [Concomitant]
     Indication: SCHIZOPHRENIA, PARANOID TYPE
     Dosage: 400 MG
     Route: 048
     Dates: end: 20080627
  6. OMEPRAZOLE [Concomitant]
     Indication: GASTROOESOPHAGEAL REFLUX DISEASE
     Route: 048
  7. SALBUTAMOL [Concomitant]
     Indication: ASTHMA
     Route: 055
  8. COLACE [Concomitant]
     Indication: CONSTIPATION
     Route: 048
  9. FLOVENT [Concomitant]
     Indication: ASTHMA
     Dosage: 125 MCG
  10. RHINOLAR [Concomitant]
     Indication: NASAL CONGESTION
     Route: 048
  11. ELTROXIN [Concomitant]
     Indication: HYPOTHYROIDISM
     Route: 048
  12. MELOXICAM [Concomitant]
     Indication: OSTEOARTHRITIS
     Route: 048
  13. TYLENOL W/ CODEINE NO. 3 [Concomitant]
     Indication: SCOLIOSIS
     Route: 048
  14. TYLENOL W/ CODEINE NO. 3 [Concomitant]
     Indication: HEADACHE
     Route: 048
  15. GLUCOSAMINE [Concomitant]
     Indication: OSTEOARTHRITIS
     Route: 048
  16. METAMUCIL [Concomitant]
     Indication: IRRITABLE BOWEL SYNDROME
     Route: 048
  17. COGENTIN [Concomitant]
     Indication: EXTRAPYRAMIDAL DISORDER
     Route: 048
     Dates: end: 20080626

REACTIONS (2)
  - LYMPHADENOPATHY [None]
  - PSYCHOTIC DISORDER [None]
